FAERS Safety Report 19443468 (Version 1)
Quarter: 2021Q2

REPORT INFORMATION
  Report Type: Spontaneous
  Country: AT (occurrence: AT)
  Receive Date: 20210621
  Receipt Date: 20210621
  Transmission Date: 20210717
  Serious: Yes (Other)
  Sender: FDA-Public Use
  Company Number: AT-BAYER-2021-160237

PATIENT
  Age: 53 Year
  Sex: Male

DRUGS (1)
  1. ULTRAVIST [Suspect]
     Active Substance: IOPROMIDE
     Dosage: ACCORDING TO PRODUCT EXPERT INFORMATION
     Route: 042
     Dates: start: 20210126, end: 20210126

REACTIONS (3)
  - Type I hypersensitivity [Recovered/Resolved]
  - Pruritus [Recovered/Resolved]
  - Pustule [Recovered/Resolved]

NARRATIVE: CASE EVENT DATE: 20210126
